FAERS Safety Report 9678144 (Version 1)
Quarter: 2013Q4

REPORT INFORMATION
  Report Type: Spontaneous
  Country: US (occurrence: US)
  Receive Date: 20131108
  Receipt Date: 20131108
  Transmission Date: 20140711
  Serious: Yes (Hospitalization)
  Sender: FDA-Public Use
  Company Number: US-SA-2013SA114614

PATIENT
  Age: 81 Year
  Sex: Male
  Weight: 81.6 kg

DRUGS (7)
  1. PLAVIX [Suspect]
     Indication: ANTIPLATELET THERAPY
     Route: 048
     Dates: start: 20110223
  2. METOPROLOL [Concomitant]
     Route: 065
     Dates: start: 20131019
  3. ASA [Concomitant]
     Route: 065
     Dates: start: 2000
  4. LIPITOR [Concomitant]
     Route: 065
     Dates: start: 2010
  5. PROTONIX [Concomitant]
     Route: 065
     Dates: start: 20110215
  6. NORVAS [Concomitant]
     Route: 065
     Dates: start: 20110215
  7. ALL OTHER THERAPEUTIC PRODUCTS [Concomitant]
     Route: 065
     Dates: start: 20121113

REACTIONS (1)
  - Coronary artery disease [Unknown]
